FAERS Safety Report 5491169-9 (Version None)
Quarter: 2007Q4

REPORT INFORMATION
  Report Type: 
  Country: None (occurrence: None)
  Receive Date: 20071019
  Receipt Date: 20071009
  Transmission Date: 20080405
  Serious: Yes (Hospitalization)
  Sender: FDA-Public Use
  Company Number: FR-GILEAD-2007-0013760

PATIENT
  Sex: Female
  Weight: 54 kg

DRUGS (9)
  1. TRUVADA [Suspect]
     Indication: HIV INFECTION
     Route: 048
     Dates: start: 20070918
  2. SUSTIVA [Suspect]
     Indication: HIV INFECTION
     Route: 048
     Dates: start: 20070918
  3. RIFADIN [Concomitant]
     Indication: TUBERCULOSIS
     Route: 048
     Dates: start: 20070827, end: 20071002
  4. RIMIFON [Concomitant]
     Indication: TUBERCULOSIS
     Route: 048
     Dates: start: 20070827, end: 20071002
  5. RIFINAH [Concomitant]
     Indication: TUBERCULOSIS
     Route: 048
     Dates: start: 20071002
  6. BACTRIM LOW [Concomitant]
     Route: 048
     Dates: start: 20070630
  7. LEDERFOLINE [Concomitant]
     Route: 048
     Dates: start: 20070629
  8. ZELITREX [Concomitant]
     Indication: HERPES VIRUS INFECTION
     Route: 048
     Dates: start: 20070630
  9. TARDIFERON [Concomitant]
     Indication: ANAEMIA
     Route: 048
     Dates: start: 20070705

REACTIONS (6)
  - ABDOMINAL PAIN [None]
  - ANOREXIA [None]
  - ASTHENIA [None]
  - PYREXIA [None]
  - VOMITING [None]
  - WEIGHT DECREASED [None]
